FAERS Safety Report 9375717 (Version 1)
Quarter: 2013Q2

REPORT INFORMATION
  Report Type: Spontaneous
  Country: US (occurrence: US)
  Receive Date: 20130628
  Receipt Date: 20130628
  Transmission Date: 20140414
  Serious: Yes (Death)
  Sender: FDA-Public Use
  Company Number: US-BAXTER-2013BAX023703

PATIENT
  Age: 74 Year
  Sex: Male

DRUGS (10)
  1. NEXTERONE_AMIODARONE, HYDROCHLORIDE 1.80 MG/ML_SOLUTION FOR INFUSION_B [Suspect]
     Indication: ATRIAL FIBRILLATION
     Route: 040
  2. NEXTERONE_AMIODARONE, HYDROCHLORIDE 1.80 MG/ML_SOLUTION FOR INFUSION_B [Suspect]
     Dosage: 1 MG/H
     Route: 042
  3. NEXTERONE_AMIODARONE, HYDROCHLORIDE 1.80 MG/ML_SOLUTION FOR INFUSION_B [Suspect]
     Dosage: 0.5 MG/H
     Route: 042
  4. AMIODARONE [Suspect]
     Indication: ATRIAL FIBRILLATION
     Dosage: STARTED ON THE THIRD POST-OP DAY
     Route: 048
  5. AMIODARONE [Suspect]
     Dosage: 400 MG/DAY
     Route: 048
  6. AMIODARONE [Suspect]
     Dosage: 200 MG DAILY
     Route: 048
  7. METOPROLOL [Concomitant]
     Indication: PRODUCT USED FOR UNKNOWN INDICATION
     Route: 065
  8. DILTIAZEM [Concomitant]
     Indication: VENTRICULAR TACHYCARDIA
     Route: 065
  9. FUROSEMIDE [Concomitant]
     Indication: POLYURIA
     Route: 065
  10. METHYLPREDNISOLONE [Concomitant]
     Indication: PRODUCT USED FOR UNKNOWN INDICATION
     Dosage: 60 MG EVERY 8 HOURS
     Route: 042

REACTIONS (1)
  - Pulmonary toxicity [Fatal]
